FAERS Safety Report 9019861 (Version 1)
Quarter: 2013Q1

REPORT INFORMATION
  Report Type: Spontaneous
  Country: US (occurrence: US)
  Receive Date: 20130118
  Receipt Date: 20130118
  Transmission Date: 20140127
  Serious: Yes (Other)
  Sender: FDA-Public Use
  Company Number: US-PFIZER INC-2013019897

PATIENT
  Age: 55 Year
  Sex: Male

DRUGS (3)
  1. LIPITOR [Suspect]
     Dosage: 80 MG, 1X/DAY
  2. COREG [Concomitant]
     Dosage: UNK
  3. LISINOPRIL [Concomitant]
     Dosage: UNK

REACTIONS (2)
  - Myocardial infarction [Not Recovered/Not Resolved]
  - Coronary artery occlusion [Not Recovered/Not Resolved]
